FAERS Safety Report 5105637-2 (Version None)
Quarter: 2006Q3

REPORT INFORMATION
  Report Type: 
  Country: None (occurrence: None)
  Receive Date: 20060915
  Receipt Date: 20050817
  Transmission Date: 20061208
  Serious: Yes (Death, Hospitalization)
  Sender: FDA-Public Use
  Company Number: PHBS2005CA11993

PATIENT
  Age: 51 Year
  Sex: Male

DRUGS (14)
  1. RAPAMUNE [Concomitant]
  2. NPH INSULIN [Concomitant]
  3. METOPROLOL [Concomitant]
  4. AMLODIPINE [Concomitant]
  5. PANTOPRAZOLE SODIUM [Concomitant]
  6. LIPITOR [Concomitant]
  7. METAMUCIL ^SEARLE^ [Concomitant]
  8. FLUDROCORTISONE [Concomitant]
  9. CIPROFLAXACIN [Concomitant]
  10. SENOKOT [Concomitant]
  11. FLAGYL [Concomitant]
  12. CLINDAMYCIN [Concomitant]
  13. LASIX [Concomitant]
  14. NEORAL [Suspect]
     Indication: RENAL TRANSPLANT
     Dosage: 75 MG, BID
     Route: 048
     Dates: start: 19950101

REACTIONS (5)
  - DEATH [None]
  - DIARRHOEA [None]
  - GASTROINTESTINAL DISORDER [None]
  - INFECTION [None]
  - TREATMENT NONCOMPLIANCE [None]
